FAERS Safety Report 11587668 (Version 1)
Quarter: 2015Q4

REPORT INFORMATION
  Report Type: Spontaneous
  Country: US (occurrence: US)
  Receive Date: 20151001
  Receipt Date: 20151001
  Transmission Date: 20160304
  Serious: Yes (Hospitalization, Other)
  Sender: FDA-Public Use
  Company Number: US-PFIZER INC-2015327670

PATIENT
  Age: 55 Year
  Sex: Male
  Weight: 88 kg

DRUGS (2)
  1. LYRICA [Suspect]
     Active Substance: PREGABALIN
     Indication: NEUROPATHY PERIPHERAL
     Dosage: 100 MG, 3X/DAY
     Route: 048
  2. NORCO [Suspect]
     Active Substance: ACETAMINOPHEN\HYDROCODONE BITARTRATE
     Indication: PAIN
     Dosage: 1 DF, 4X/DAY (10/325 MG, 1 TABLET, 4X/DAY)
     Route: 048

REACTIONS (6)
  - Drug ineffective [Unknown]
  - Pneumonia [Not Recovered/Not Resolved]
  - Lower limb fracture [Recovering/Resolving]
  - Abasia [Recovering/Resolving]
  - Pain [Not Recovered/Not Resolved]
  - Sciatic nerve neuropathy [Recovering/Resolving]

NARRATIVE: CASE EVENT DATE: 201503
